FAERS Safety Report 6435145-8 (Version None)
Quarter: 2009Q4

REPORT INFORMATION
  Report Type: 
  Country: None (occurrence: None)
  Receive Date: 20091110
  Receipt Date: 20090811
  Transmission Date: 20100525
  Serious: Yes (Other)
  Sender: FDA-Public Use
  Company Number: US-BRISTOL-MYERS SQUIBB COMPANY-14738090

PATIENT
  Age: 5 Decade
  Sex: Female

DRUGS (2)
  1. IXEMPRA KIT [Suspect]
     Indication: BREAST CANCER METASTATIC
     Dosage: STARTED 4 MONTHS AGO;DOSE DECREASED BY 20 PERCENT AND INF FOR EVERY 4 WEEKS INSTEAD EVERY THREE.
  2. XELODA [Suspect]
     Indication: BREAST CANCER METASTATIC
     Dosage: STARTED 4 MONTHS AGO

REACTIONS (4)
  - NAUSEA [None]
  - NEUROPATHY PERIPHERAL [None]
  - NEUTROPENIA [None]
  - VOMITING [None]
